FAERS Safety Report 4351753-2 (Version None)
Quarter: 2004Q2

REPORT INFORMATION
  Report Type: 
  Country: None (occurrence: None)
  Receive Date: 20040503
  Receipt Date: 20030912
  Transmission Date: 20050107
  Serious: Yes (Other)
  Sender: FDA-Public Use
  Company Number: JP-GLAXOSMITHKLINE-B0309722A

PATIENT
  Age: 56 Year
  Sex: Male

DRUGS (12)
  1. EPIVIR [Suspect]
     Indication: HIV INFECTION
     Dosage: 300MG PER DAY
     Route: 048
     Dates: start: 19970426
  2. RETROVIR [Suspect]
     Indication: HIV INFECTION
     Dosage: 200MG PER DAY
     Route: 048
     Dates: start: 19950324
  3. CRIXIVAN [Suspect]
     Indication: HIV INFECTION
     Dosage: 2400MG PER DAY
     Route: 048
     Dates: start: 19970426, end: 19980930
  4. VIRACEPT [Suspect]
     Indication: HIV INFECTION
     Dosage: 2250MG PER DAY
     Route: 048
     Dates: start: 19981001, end: 20040224
  5. DIDANOSINE [Concomitant]
     Indication: HIV INFECTION
     Dosage: 200MG PER DAY
     Route: 048
     Dates: start: 19930116, end: 19970425
  6. CLOXAZOLAM [Concomitant]
     Indication: DEPRESSION
     Dosage: 2U PER DAY
     Route: 048
  7. RITONAVIR [Concomitant]
     Indication: HIV INFECTION
     Dosage: 300MG PER DAY
     Route: 048
     Dates: start: 20040225
  8. BROTIZOLAM [Concomitant]
     Indication: DEPRESSION
     Dosage: 2U PER DAY
     Route: 048
  9. FLUNITRAZEPAM [Concomitant]
     Indication: DEPRESSION
     Dosage: 2U PER DAY
     Route: 048
  10. AMITRIPTYLINE HCL [Concomitant]
     Indication: DEPRESSION
     Dosage: 2U PER DAY
     Route: 048
  11. IMIPRAMINE [Concomitant]
     Indication: DEPRESSION
     Dosage: 2U PER DAY
     Route: 048
  12. AMOXAN [Concomitant]
     Indication: DEPRESSION
     Route: 048

REACTIONS (2)
  - HEPATIC FUNCTION ABNORMAL [None]
  - RENAL ATROPHY [None]
